FAERS Safety Report 26149810 (Version 1)
Quarter: 2025Q4

REPORT INFORMATION
  Report Type: Spontaneous
  Country: US (occurrence: US)
  Receive Date: 20251212
  Receipt Date: 20251212
  Transmission Date: 20260117
  Serious: No
  Sender: ALCON
  Company Number: US-ALCON LABORATORIES-ALC2025US005545

PATIENT
  Sex: Male

DRUGS (2)
  1. ACOLTREMON [Suspect]
     Active Substance: ACOLTREMON
     Indication: Dry eye
     Dosage: 1 DROP EACH EYE TWICE A DAY FOR 90 DAYS
     Route: 047
     Dates: start: 20250926
  2. ACOLTREMON [Suspect]
     Active Substance: ACOLTREMON
     Indication: Eye pruritus

REACTIONS (2)
  - Drug ineffective [Unknown]
  - Eye pain [Unknown]
